FAERS Safety Report 8120462-6 (Version None)
Quarter: 2012Q1

REPORT INFORMATION
  Report Type: 
  Country: None (occurrence: None)
  Receive Date: 20120203
  Receipt Date: 20120121
  Transmission Date: 20120608
  Serious: Yes (Hospitalization)
  Sender: FDA-Public Use
  Company Number: 2012AP000200

PATIENT
  Age: 35 Year
  Sex: Male

DRUGS (1)
  1. METFORMIN HCL [Suspect]
     Indication: TYPE 2 DIABETES MELLITUS

REACTIONS (5)
  - MIXED LIVER INJURY [None]
  - SKIN EXFOLIATION [None]
  - HEPATITIS ACUTE [None]
  - PANCREATITIS [None]
  - HEPATOTOXICITY [None]
